FAERS Safety Report 9145508 (Version 1)
Quarter: 2013Q1

REPORT INFORMATION
  Report Type: Report from Study
  Country: CA (occurrence: CA)
  Receive Date: 20130307
  Receipt Date: 20130307
  Transmission Date: 20140127
  Serious: Yes (Other)
  Sender: FDA-Public Use
  Company Number: CA-JNJFOC-20130300205

PATIENT
  Age: 28 Year
  Sex: Female
  Weight: 72.8 kg

DRUGS (2)
  1. REMICADE [Suspect]
     Indication: CROHN^S DISEASE
     Route: 042
     Dates: start: 20110511
  2. IRON [Concomitant]
     Route: 065

REACTIONS (1)
  - Migraine [Recovered/Resolved]
